FAERS Safety Report 12242595 (Version 1)
Quarter: 2016Q2

REPORT INFORMATION
  Report Type: Spontaneous
  Country: US (occurrence: US)
  Receive Date: 20160406
  Receipt Date: 20160406
  Transmission Date: 20160815
  Serious: No
  Sender: FDA-Public Use
  Company Number: US-009507513-1603USA006138

PATIENT
  Age: 23 Year
  Sex: Female
  Weight: 138.32 kg

DRUGS (1)
  1. NEXPLANON [Suspect]
     Active Substance: ETONOGESTREL
     Indication: CONTRACEPTION
     Dosage: 68MG ROD PER 3 YEAR
     Route: 059
     Dates: end: 20160304

REACTIONS (4)
  - Device breakage [Recovered/Resolved]
  - Inflammation [Unknown]
  - Discomfort [Unknown]
  - Device difficult to use [Recovered/Resolved]

NARRATIVE: CASE EVENT DATE: 20160219
